FAERS Safety Report 19171754 (Version 1)
Quarter: 2021Q2

REPORT INFORMATION
  Report Type: Spontaneous
  Country: US (occurrence: US)
  Receive Date: 20210421
  Receipt Date: 20210421
  Transmission Date: 20210717
  Serious: Yes (Disabling)
  Sender: FDA-Public Use
  Company Number: None

PATIENT
  Age: 54 Year
  Sex: Female
  Weight: 67.59 kg

DRUGS (13)
  1. NORTRIPYTYLINE HCL [Concomitant]
  2. CLONAZEPAM. [Concomitant]
     Active Substance: CLONAZEPAM
  3. VITAMIN D2 [Concomitant]
     Active Substance: ERGOCALCIFEROL
  4. ALBUTEROL HFA [Concomitant]
     Active Substance: ALBUTEROL SULFATE
  5. ADVIL [Suspect]
     Active Substance: IBUPROFEN
  6. YUVAFEM [Concomitant]
     Active Substance: ESTRADIOL HEMIHYDRATE
  7. VENLAFAXINE HCL [Concomitant]
     Active Substance: VENLAFAXINE HYDROCHLORIDE
  8. ZOLPIDEM TART ER [Concomitant]
     Active Substance: ZOLPIDEM TARTRATE
  9. LINZESS [Suspect]
     Active Substance: LINACLOTIDE
     Indication: IRRITABLE BOWEL SYNDROME
     Dosage: ?          QUANTITY:1 DF DOSAGE FORM;OTHER FREQUENCY:Q BEFORE BREAKFAST;?
     Route: 048
     Dates: start: 20200214
  10. TRAZODONE [Concomitant]
     Active Substance: TRAZODONE HYDROCHLORIDE
  11. VYVANSE [Concomitant]
     Active Substance: LISDEXAMFETAMINE DIMESYLATE
  12. GABAPENTIN. [Concomitant]
     Active Substance: GABAPENTIN
  13. TYNELOL [Concomitant]
     Active Substance: ACETAMINOPHEN

REACTIONS (7)
  - Constipation [None]
  - Musculoskeletal pain [None]
  - Hyperhidrosis [None]
  - Insomnia [None]
  - Tinnitus [None]
  - Abdominal pain [None]
  - Incorrect dose administered by product [None]

NARRATIVE: CASE EVENT DATE: 20210101
